FAERS Safety Report 9100319 (Version 2)
Quarter: 2013Q1

REPORT INFORMATION
  Report Type: Spontaneous
  Country: JP (occurrence: JP)
  Receive Date: 20130215
  Receipt Date: 20130222
  Transmission Date: 20140127
  Serious: Yes (Hospitalization)
  Sender: FDA-Public Use
  Company Number: JP-PFIZER INC-2013028550

PATIENT
  Age: 44 Year
  Sex: Female

DRUGS (2)
  1. PREMARIN [Suspect]
     Indication: OVARIAN FAILURE
     Dosage: 0.625 MG, 1X/DAY
     Route: 048
     Dates: end: 20130119
  2. PROVERA [Suspect]
     Indication: OVARIAN FAILURE
     Dosage: 2.5 MG, 1X/DAY
     Route: 048

REACTIONS (1)
  - Enterocolitis [Unknown]
